FAERS Safety Report 8606728-1 (Version None)
Quarter: 2012Q3

REPORT INFORMATION
  Report Type: 
  Country: None (occurrence: None)
  Receive Date: 20120820
  Receipt Date: 20120810
  Transmission Date: 20120928
  Serious: Yes (Other)
  Sender: FDA-Public Use
  Company Number: US-ABBOTT-12P-163-0967638-00

PATIENT
  Age: 56 Year
  Sex: Female

DRUGS (3)
  1. LAMICTAL [Concomitant]
     Indication: EPILEPSY
  2. KEPPRA [Concomitant]
     Indication: EPILEPSY
  3. HUMIRA [Suspect]
     Indication: RHEUMATOID ARTHRITIS
     Dates: start: 20120806

REACTIONS (5)
  - DYSPHONIA [None]
  - CONVULSION [None]
  - HEADACHE [None]
  - FATIGUE [None]
  - ASTHENIA [None]
